FAERS Safety Report 5520445-6 (Version None)
Quarter: 2007Q4

REPORT INFORMATION
  Report Type: 
  Country: None (occurrence: None)
  Receive Date: 20071119
  Receipt Date: 20071115
  Transmission Date: 20080405
  Serious: Yes (Life-Threatening, Hospitalization, Other)
  Sender: FDA-Public Use
  Company Number: PHHO2007JP00771

PATIENT
  Age: 61 Year
  Sex: Male
  Weight: 66 kg

DRUGS (42)
  1. AMN107 [Suspect]
     Indication: CHRONIC MYELOID LEUKAEMIA
     Dosage: 800 MG, QD
     Route: 048
     Dates: start: 20061031, end: 20061102
  2. AMN107 [Suspect]
     Dosage: NO TREATMENT
     Dates: start: 20061103, end: 20061103
  3. AMN107 [Suspect]
     Dosage: 400 MG, QD
     Route: 048
     Dates: start: 20061104, end: 20061206
  4. AMN107 [Suspect]
     Dosage: NO TREATMENT
     Dates: start: 20061207, end: 20061220
  5. AMN107 [Suspect]
     Dosage: 400 MG, QD
     Route: 048
     Dates: start: 20061221, end: 20070107
  6. AMN107 [Suspect]
     Dosage: UNK, NO TREATMENT
     Dates: start: 20070425, end: 20070502
  7. AMN107 [Suspect]
     Route: 048
     Dates: start: 20070503, end: 20070516
  8. AMN107 [Suspect]
     Dosage: UNK, NO TREATMENT
     Dates: start: 20070517, end: 20070525
  9. AMN107 [Suspect]
     Route: 048
     Dates: start: 20070526, end: 20070527
  10. AMN107 [Suspect]
     Dosage: UNK, NO TREATMENT
     Dates: start: 20070528, end: 20070602
  11. AMN107 [Suspect]
     Dosage: 200 MG, QD
     Route: 048
     Dates: start: 20070603, end: 20070606
  12. AMN107 [Suspect]
     Dosage: NO TREATMENT
     Dates: start: 20070108, end: 20070124
  13. AMN107 [Suspect]
     Dosage: 400 MG, QD
     Route: 048
     Dates: start: 20070125, end: 20070228
  14. AMN107 [Suspect]
     Dosage: NO TREATMENT
     Dates: start: 20070301, end: 20070306
  15. AMN107 [Suspect]
     Dosage: 400 MG, QD
     Route: 048
     Dates: start: 20070307, end: 20070424
  16. MUCOSTA [Concomitant]
     Indication: PROPHYLAXIS
  17. XYLOCAINE [Concomitant]
     Indication: PAIN
  18. ATARAX [Concomitant]
     Indication: NEUROTOXICITY
  19. POVIDONE IODINE [Concomitant]
     Indication: ANAESTHESIA
  20. SELTOUCH [Concomitant]
     Indication: BACK PAIN
  21. MS REISHIPPU ASTRA [Concomitant]
     Indication: BACK PAIN
  22. ISOTONIC SOLUTIONS [Concomitant]
  23. PHYSISALZ [Concomitant]
  24. LOXONIN [Concomitant]
  25. ONCOVIN [Concomitant]
  26. PAZUFLOXACIN [Concomitant]
  27. ASPIRIN [Concomitant]
  28. OMNIPAQUE 300 [Concomitant]
  29. FAMOTIDINE [Concomitant]
  30. MEVALOTIN [Concomitant]
  31. KN SOL. 3B [Concomitant]
  32. LACTEC [Concomitant]
  33. SOLITA T [Concomitant]
  34. ENALAPRIL MALEATE [Concomitant]
  35. GLYSENNID [Concomitant]
  36. LECICARBON [Concomitant]
  37. PANTOSIN [Concomitant]
  38. MAGNESIUM OXIDE [Concomitant]
  39. MEYLON [Concomitant]
  40. ALOSITOL [Concomitant]
  41. DIFLUCAN [Concomitant]
  42. KYTRIL [Concomitant]

REACTIONS (20)
  - BLAST CRISIS IN MYELOGENOUS LEUKAEMIA [None]
  - CHEST DISCOMFORT [None]
  - COLD SWEAT [None]
  - CONCOMITANT DISEASE PROGRESSION [None]
  - CORONARY ANGIOPLASTY [None]
  - CORONARY ARTERY RESTENOSIS [None]
  - CRANIOTOMY [None]
  - LEFT VENTRICULAR HYPERTROPHY [None]
  - MOTOR DYSFUNCTION [None]
  - MUSCULAR WEAKNESS [None]
  - MYOCARDIAL INFARCTION [None]
  - NEUTROPENIA [None]
  - PAINFUL RESPIRATION [None]
  - PALLOR [None]
  - PERIPHERAL COLDNESS [None]
  - PNEUMONIA [None]
  - PYREXIA [None]
  - SHUNT MALFUNCTION [None]
  - SUBDURAL HAEMATOMA [None]
  - SUBDURAL HAEMATOMA EVACUATION [None]
